FAERS Safety Report 5114166-1 (Version None)
Quarter: 2006Q3

REPORT INFORMATION
  Report Type: 
  Country: None (occurrence: None)
  Receive Date: 20060920
  Receipt Date: 20060907
  Transmission Date: 20061208
  Serious: Yes (Hospitalization)
  Sender: FDA-Public Use
  Company Number: 2006109094

PATIENT
  Age: 71 Year
  Sex: Male
  Weight: 76 kg

DRUGS (1)
  1. SUTENT [Suspect]
     Indication: RENAL CELL CARCINOMA STAGE UNSPECIFIED
     Dosage: (50 MG, 1 IN 1 D), ORAL
     Route: 048
     Dates: start: 20060622

REACTIONS (2)
  - DIABETES MELLITUS [None]
  - VASCULAR INSUFFICIENCY [None]
